FAERS Safety Report 9073033 (Version 1)
Quarter: 2013Q1

REPORT INFORMATION
  Report Type: Report from Study
  Country: US (occurrence: US)
  Receive Date: 20130129
  Receipt Date: 20130129
  Transmission Date: 20140127
  Serious: No
  Sender: FDA-Public Use
  Company Number: US-ABBOTT-12P-163-0925346-00

PATIENT
  Age: 70 Year
  Sex: Female

DRUGS (9)
  1. HUMIRA 40 MG/0.8 ML PEN [Suspect]
     Indication: RHEUMATOID ARTHRITIS
     Dates: start: 20120329
  2. METHOTREXATE [Concomitant]
     Indication: ARTHRITIS
     Dosage: 2.5 MG X 8 TABLETS WEEKLY
     Route: 048
  3. PREDNISONE [Concomitant]
     Indication: ARTHRITIS
     Dosage: 12 MG DAILY
     Route: 048
  4. PRILOSEC [Concomitant]
     Indication: PROPHYLAXIS AGAINST GASTROINTESTINAL ULCER
     Dosage: 20 MG DAILY
     Route: 048
  5. CALCIUM [Concomitant]
     Indication: PRODUCT USED FOR UNKNOWN INDICATION
     Dosage: TABLET DAILY
     Route: 048
  6. COUMADIN [Concomitant]
     Indication: THROMBOSIS
     Dosage: 4 MG DAILY
     Route: 048
  7. LEUCOVORIN CALCIUM [Concomitant]
     Indication: VITAMIN SUPPLEMENTATION
     Dosage: ONE DAY AFTER THE METHOTREXATE
     Route: 048
  8. VITAMINS OVER THE COUNTER [Concomitant]
     Indication: PRODUCT USED FOR UNKNOWN INDICATION
  9. MINERALS OVER THE COUNTER [Concomitant]
     Indication: PRODUCT USED FOR UNKNOWN INDICATION

REACTIONS (1)
  - Hypersensitivity [Not Recovered/Not Resolved]
